FAERS Safety Report 9771082 (Version 1)
Quarter: 2013Q4

REPORT INFORMATION
  Report Type: Spontaneous
  Country: CH (occurrence: CH)
  Receive Date: 20131218
  Receipt Date: 20131218
  Transmission Date: 20140711
  Serious: Yes (Death, Hospitalization, Other)
  Sender: FDA-Public Use
  Company Number: CH-PFIZER INC-2013360916

PATIENT
  Age: 76 Year
  Sex: 0

DRUGS (5)
  1. CORDARONE [Suspect]
     Dosage: 200 MG, DAILY
     Route: 048
  2. MARCOUMAR [Interacting]
     Indication: ANTICOAGULANT THERAPY
     Dosage: 3 MG, DAILY
     Route: 048
  3. REMERON [Interacting]
     Dosage: 15 MG, DAILY
     Route: 048
  4. ALDACTONE [Concomitant]
     Dosage: UNK
  5. SERESTA [Concomitant]
     Dosage: UNK

REACTIONS (2)
  - Drug interaction [Fatal]
  - Cerebral haemorrhage [Fatal]
